FAERS Safety Report 8178357-8 (Version None)
Quarter: 2012Q1

REPORT INFORMATION
  Report Type: 
  Country: None (occurrence: None)
  Receive Date: 20120301
  Receipt Date: 20120227
  Transmission Date: 20120608
  Serious: Yes (Other)
  Sender: FDA-Public Use
  Company Number: FR-PFIZER INC-2012050896

PATIENT
  Age: 86 Year
  Sex: Female

DRUGS (2)
  1. LYRICA [Suspect]
     Dosage: 25MG, UNK
     Dates: start: 20120224
  2. LYRICA [Suspect]
     Indication: NEUROPATHY PERIPHERAL
     Dosage: 50 MG, UNK
     Dates: start: 20120223

REACTIONS (4)
  - VISUAL ACUITY REDUCED [None]
  - EYELID OEDEMA [None]
  - DIZZINESS [None]
  - VERTIGO [None]
